FAERS Safety Report 9550638 (Version 5)
Quarter: 2015Q3

REPORT INFORMATION
  Report Type: Report from Study
  Country: US (occurrence: US)
  Receive Date: 20130924
  Receipt Date: 20150911
  Transmission Date: 20151125
  Serious: Yes (Other)
  Sender: FDA-Public Use
  Company Number: US-SANOFI-AVENTIS-2013SA042719

PATIENT
  Age: 60 Year
  Sex: Female
  Weight: 51 kg

DRUGS (3)
  1. AUBAGIO [Suspect]
     Active Substance: TERIFLUNOMIDE
     Indication: MULTIPLE SCLEROSIS
     Route: 048
     Dates: start: 20130405, end: 20130701
  2. AUBAGIO [Suspect]
     Active Substance: TERIFLUNOMIDE
     Indication: MULTIPLE SCLEROSIS
     Dosage: CUT HER TERIFLUNOMIDE IN HALF
     Route: 048
     Dates: start: 20130701
  3. AUBAGIO [Suspect]
     Active Substance: TERIFLUNOMIDE
     Indication: MULTIPLE SCLEROSIS
     Route: 048
     Dates: end: 20131119

REACTIONS (31)
  - Multiple sclerosis [Unknown]
  - Back pain [Unknown]
  - Nausea [Recovered/Resolved]
  - Menstrual disorder [Not Recovered/Not Resolved]
  - Pain [Not Recovered/Not Resolved]
  - Paraesthesia [Not Recovered/Not Resolved]
  - Acne [Recovered/Resolved]
  - Menorrhagia [Unknown]
  - Blindness [Unknown]
  - Dermal cyst [Unknown]
  - Haematochezia [Unknown]
  - Hypoaesthesia [Not Recovered/Not Resolved]
  - Feeling hot [Unknown]
  - Crying [Recovered/Resolved]
  - Furuncle [Not Recovered/Not Resolved]
  - Diarrhoea [Recovered/Resolved]
  - Influenza like illness [Recovered/Resolved]
  - Drug dose omission [Unknown]
  - Fatigue [Unknown]
  - Frequent bowel movements [Unknown]
  - Affect lability [Recovered/Resolved]
  - Sensation of foreign body [Recovered/Resolved]
  - Abdominal pain [Unknown]
  - Alanine aminotransferase increased [Unknown]
  - Alopecia [Recovered/Resolved]
  - Extra dose administered [Unknown]
  - Hepatic enzyme increased [Unknown]
  - Pruritus [Recovered/Resolved]
  - Menorrhagia [Not Recovered/Not Resolved]
  - Tendonitis [Unknown]
  - Wrong technique in product usage process [Unknown]

NARRATIVE: CASE EVENT DATE: 2013
